FAERS Safety Report 7590490-8 (Version None)
Quarter: 2011Q2

REPORT INFORMATION
  Report Type: 
  Country: None (occurrence: None)
  Receive Date: 20110627
  Receipt Date: 20110620
  Transmission Date: 20111010
  Serious: Yes (Other)
  Sender: FDA-Public Use
  Company Number: JPI-P-015462

PATIENT
  Age: 40 Year
  Sex: Female

DRUGS (1)
  1. XYREM [Suspect]
     Indication: CATAPLEXY
     Dosage: 6 GM (3 GM, 2 IN 1 D), ORAL
     Route: 048
     Dates: start: 20101119

REACTIONS (13)
  - HANGOVER [None]
  - DECREASED APPETITE [None]
  - HEART RATE INCREASED [None]
  - FEELING ABNORMAL [None]
  - DEPRESSED LEVEL OF CONSCIOUSNESS [None]
  - HEADACHE [None]
  - FALL [None]
  - PARAESTHESIA [None]
  - MALAISE [None]
  - DIZZINESS [None]
  - HYPOAESTHESIA [None]
  - BLOOD PRESSURE INCREASED [None]
  - DISORIENTATION [None]
